FAERS Safety Report 17083668 (Version 2)
Quarter: 2020Q1

REPORT INFORMATION
  Report Type: Report from Study
  Country: US (occurrence: US)
  Receive Date: 20191127
  Receipt Date: 20200128
  Transmission Date: 20200409
  Serious: Yes (Other)
  Sender: FDA-Public Use
  Company Number: US-ELI_LILLY_AND_COMPANY-US201911010863

PATIENT
  Sex: Female

DRUGS (4)
  1. AFATINIB [Concomitant]
     Active Substance: AFATINIB
     Dosage: 30 MG
     Route: 048
     Dates: start: 20190912, end: 20190926
  2. NECITUMUMAB [Suspect]
     Active Substance: NECITUMUMAB
     Indication: NON-SMALL CELL LUNG CANCER
     Dosage: UNK, CYCLICAL
     Route: 042
     Dates: start: 20190620
  3. AFATINIB [Concomitant]
     Active Substance: AFATINIB
     Indication: NON-SMALL CELL LUNG CANCER
     Dosage: UNK, DAILY
     Route: 048
     Dates: start: 20190620
  4. NECITUMUMAB [Suspect]
     Active Substance: NECITUMUMAB
     Dosage: 400 MG, CYCLICAL
     Route: 042
     Dates: start: 20190912

REACTIONS (1)
  - Rash maculo-papular [Not Recovered/Not Resolved]

NARRATIVE: CASE EVENT DATE: 20190826
